FAERS Safety Report 24553759 (Version 1)
Quarter: 2024Q4

REPORT INFORMATION
  Report Type: Report from Study
  Country: GB (occurrence: GB)
  Receive Date: 20241028
  Receipt Date: 20241028
  Transmission Date: 20250114
  Serious: No
  Sender: ROCHE
  Company Number: GB-IPSEN Group, Research and Development-2022-29752

PATIENT
  Sex: Male

DRUGS (2)
  1. NUTROPIN AQ [Suspect]
     Active Substance: SOMATROPIN
     Indication: Hypopituitarism
     Dosage: 0.3 MG, DAILY
     Route: 058
     Dates: start: 200607
  2. NUTROPIN AQ [Suspect]
     Active Substance: SOMATROPIN
     Dosage: 0.3 MG,DAILY
     Route: 058

REACTIONS (2)
  - Gallbladder disorder [Unknown]
  - Product dose omission issue [Unknown]
